FAERS Safety Report 6055811-6 (Version None)
Quarter: 2009Q1

REPORT INFORMATION
  Report Type: 
  Country: None (occurrence: None)
  Receive Date: 20090128
  Receipt Date: 20090119
  Transmission Date: 20090719
  Serious: Yes (Hospitalization)
  Sender: FDA-Public Use
  Company Number: CA-WYE-H07736809

PATIENT
  Age: 39 Year
  Sex: Female
  Weight: 90.2 kg

DRUGS (3)
  1. GEMTUZUMAB OZOGAMICIN [Suspect]
     Indication: ACUTE MYELOID LEUKAEMIA
     Dosage: TOTAL DOSE THIS COURSE 12 MG
     Dates: start: 20081201, end: 20081215
  2. CYTARABINE [Suspect]
     Indication: ACUTE MYELOID LEUKAEMIA
     Dosage: TOTAL DOSE THIS COURSE 1400 MG
     Dates: start: 20081201, end: 20081218
  3. DAUNOMYCIN [Suspect]
     Indication: ACUTE MYELOID LEUKAEMIA
     Dosage: TOTAL DOSE THIS COURSE 270 MG
     Dates: start: 20081201, end: 20081214

REACTIONS (2)
  - LUNG INFILTRATION [None]
  - PNEUMONITIS [None]
